FAERS Safety Report 7030966-5 (Version None)
Quarter: 2010Q4

REPORT INFORMATION
  Report Type: 
  Country: None (occurrence: None)
  Receive Date: 20101006
  Receipt Date: 20091125
  Transmission Date: 20110411
  Serious: No
  Sender: FDA-Public Use
  Company Number: US-BRISTOL-MYERS SQUIBB COMPANY-14866495

PATIENT
  Sex: Female

DRUGS (1)
  1. KENALOG-40 [Suspect]
     Indication: SWELLING
     Dosage: IN EACH MALAR AREA
     Dates: start: 20090701

REACTIONS (3)
  - INJECTION SITE DISCOLOURATION [None]
  - PRURITUS [None]
  - SKIN EROSION [None]
